FAERS Safety Report 7246327-X (Version None)
Quarter: 2011Q1

REPORT INFORMATION
  Report Type: 
  Country: None (occurrence: None)
  Receive Date: 20110126
  Receipt Date: 20110119
  Transmission Date: 20110831
  Serious: Yes (Other)
  Sender: FDA-Public Use
  Company Number: US-PFIZER INC-US-WYE-H18526010

PATIENT
  Sex: Female
  Weight: 59.02 kg

DRUGS (1)
  1. PRISTIQ [Suspect]
     Indication: ANXIETY
     Dosage: 50.0 MG, 1X/DAY
     Route: 048
     Dates: start: 20090504, end: 20100801

REACTIONS (6)
  - CRYING [None]
  - EMOTIONAL DISORDER [None]
  - DRUG WITHDRAWAL SYNDROME [None]
  - MALAISE [None]
  - MENTAL IMPAIRMENT [None]
  - MEMORY IMPAIRMENT [None]
